FAERS Safety Report 24746352 (Version 1)
Quarter: 2024Q4

REPORT INFORMATION
  Report Type: Spontaneous
  Country: US (occurrence: US)
  Receive Date: 20241218
  Receipt Date: 20241218
  Transmission Date: 20250115
  Serious: No
  Sender: AUROBINDO
  Company Number: US-AUROBINDO-AUR-APL-2024-052496

PATIENT
  Sex: Male
  Weight: 68 kg

DRUGS (1)
  1. LENALIDOMIDE [Suspect]
     Active Substance: LENALIDOMIDE
     Indication: Plasma cell myeloma
     Dosage: UNK, DAILY (ON DAY 1-21 OF 28- DAY CYCLE)
     Route: 048
     Dates: start: 20241015

REACTIONS (2)
  - Behaviour disorder [Unknown]
  - Rash [Unknown]

NARRATIVE: CASE EVENT DATE: 20241017
